FAERS Safety Report 7352864-X (Version None)
Quarter: 2011Q1

REPORT INFORMATION
  Report Type: 
  Country: None (occurrence: None)
  Receive Date: 20110315
  Receipt Date: 20110303
  Transmission Date: 20110831
  Serious: Yes (Life-Threatening, Hospitalization, Disabling, Other)
  Sender: FDA-Public Use
  Company Number: US-BAYER-200911922NA

PATIENT
  Sex: Female
  Weight: 115 kg

DRUGS (29)
  1. ACETAMINOPHEN W/ PROPOXYPHENE HCL [Concomitant]
  2. LEVOTHYROXINE [Concomitant]
  3. TIZANIDINE [Concomitant]
  4. SYNTHROID [Concomitant]
     Dosage: 100 MG, QD
  5. SERTRALINE [Concomitant]
     Dosage: QAM
     Dates: start: 20080122
  6. ZOLPIDEM [Concomitant]
  7. DULOXETINE [Concomitant]
  8. CLOZAPINE [Concomitant]
  9. METHOTREXATE [Concomitant]
  10. TYLENOL EXTRA STRENGTH [Suspect]
     Dosage: 1000 MG, QID
     Route: 048
     Dates: start: 20090101, end: 20090123
  11. HYDROCHLOROTHIAZIDE [Concomitant]
     Dosage: 25 MG, QD
     Dates: start: 20090125
  12. PREVACID [Concomitant]
     Dosage: 30 MG, QD
     Dates: start: 20080122
  13. ALLEGRA [Concomitant]
  14. NASONEX [Concomitant]
     Dosage: 50 ?G, QD
  15. ALBUTEROL [Concomitant]
     Route: 055
  16. ALPRAZOLAM [Concomitant]
     Dosage: UNK, PRN
  17. MUCOMYST [Concomitant]
  18. MUCINEX [Concomitant]
  19. METOCLOPRAMIDE HCL [Concomitant]
  20. CYCLOBENZAPRINE [Concomitant]
  21. OMEPRAZOLE [Concomitant]
  22. ASMANEX TWISTHALER [Concomitant]
  23. FEXOFENADINE [Concomitant]
  24. SULFAMETHOXAZOLE AND TRIMETHOPRIM [Concomitant]
  25. XANTHINES [Concomitant]
  26. AVELOX [Suspect]
     Indication: LOBAR PNEUMONIA
     Dates: start: 20090116, end: 20090123
  27. SIMVASTATIN [Concomitant]
     Dosage: 20 MG, QD
     Dates: end: 20090123
  28. RANITIDINE [Concomitant]
  29. THEOPHYLLINE [Concomitant]

REACTIONS (39)
  - HEPATIC FAILURE [None]
  - HEPATIC ENCEPHALOPATHY [None]
  - TRANSPLANT FAILURE [None]
  - KIDNEY INFECTION [None]
  - HEPATORENAL SYNDROME [None]
  - PAIN [None]
  - DECREASED APPETITE [None]
  - LIVER FUNCTION TEST ABNORMAL [None]
  - EATING DISORDER [None]
  - GASTROENTERITIS [None]
  - CONFUSIONAL STATE [None]
  - FATIGUE [None]
  - PRURITUS [None]
  - ABDOMINAL WALL ABSCESS [None]
  - TOXICITY TO VARIOUS AGENTS [None]
  - RENAL TUBULAR NECROSIS [None]
  - BLOOD PRESSURE DECREASED [None]
  - RENAL IMPAIRMENT [None]
  - ABDOMINAL PAIN [None]
  - SOMNOLENCE [None]
  - RENAL FAILURE [None]
  - DIARRHOEA [None]
  - JAUNDICE [None]
  - ASTHENIA [None]
  - BACK PAIN [None]
  - COAGULOPATHY [None]
  - WEIGHT DECREASED [None]
  - PYREXIA [None]
  - MALAISE [None]
  - OCULAR ICTERUS [None]
  - CHROMATURIA [None]
  - HEART RATE INCREASED [None]
  - OLIGURIA [None]
  - CHOLESTASIS [None]
  - CELLULITIS [None]
  - NAUSEA [None]
  - SKIN CANDIDA [None]
  - HEADACHE [None]
  - MESANGIOPROLIFERATIVE GLOMERULONEPHRITIS [None]
